FAERS Safety Report 13572284 (Version 1)
Quarter: 2017Q2

REPORT INFORMATION
  Report Type: Spontaneous
  Country: US (occurrence: US)
  Receive Date: 20170523
  Receipt Date: 20170523
  Transmission Date: 20170830
  Serious: No
  Sender: FDA-Public Use
  Company Number: US-ASTRAZENECA-2017SE52030

PATIENT
  Age: 70 Year
  Sex: Female
  Weight: 72.6 kg

DRUGS (6)
  1. DALIRESP [Suspect]
     Active Substance: ROFLUMILAST
     Indication: SINUSITIS
     Route: 048
     Dates: start: 2012
  2. SPIRIVA [Concomitant]
     Active Substance: TIOTROPIUM BROMIDE MONOHYDRATE
     Indication: CHRONIC OBSTRUCTIVE PULMONARY DISEASE
     Dosage: DAILY
     Route: 055
  3. SYMBICORT [Suspect]
     Active Substance: BUDESONIDE\FORMOTEROL FUMARATE DIHYDRATE
     Indication: ASTHMA
     Dosage: 80/4.5 MCG, 2 PUFF TWICE DAILY
     Route: 055
  4. ALBUTEROL - PROAIR [Concomitant]
     Dosage: AS REQUIRED
     Route: 055
     Dates: start: 2009
  5. DALIRESP [Suspect]
     Active Substance: ROFLUMILAST
     Indication: BRONCHITIS
     Route: 048
     Dates: start: 2012
  6. SPIRIVA [Concomitant]
     Active Substance: TIOTROPIUM BROMIDE MONOHYDRATE
     Indication: BRONCHITIS
     Dosage: DAILY
     Route: 055

REACTIONS (3)
  - Bronchitis [Unknown]
  - Sinusitis [Unknown]
  - Drug dose omission [Unknown]

NARRATIVE: CASE EVENT DATE: 2012
